FAERS Safety Report 21833828 (Version 1)
Quarter: 2023Q1

REPORT INFORMATION
  Report Type: Spontaneous
  Country: ES (occurrence: ES)
  Receive Date: 20230108
  Receipt Date: 20230108
  Transmission Date: 20230417
  Serious: Yes (Other)
  Sender: FDA-Public Use
  Company Number: ES-AUROBINDO-AUR-APL-2022-057650

PATIENT
  Age: 53 Year
  Sex: Male

DRUGS (5)
  1. AMISULPRIDE [Suspect]
     Active Substance: AMISULPRIDE
     Indication: Psychiatric decompensation
     Dosage: 1200 MILLIGRAM, ONCE A DAY
     Route: 065
  2. OLANZAPINE [Suspect]
     Active Substance: OLANZAPINE
     Indication: Psychiatric decompensation
     Dosage: 30 MILLIGRAM, ONCE A DAY
     Route: 065
  3. CLOTHIAPINE [Suspect]
     Active Substance: CLOTHIAPINE
     Indication: Psychiatric decompensation
     Dosage: 40 MILLIGRAM, ONCE A DAY
     Route: 065
  4. HALOPERIDOL [Suspect]
     Active Substance: HALOPERIDOL
     Indication: Psychiatric decompensation
     Dosage: 6 MILLIGRAM, ONCE A DAY
     Route: 065
  5. LORMETAZEPAM [Concomitant]
     Active Substance: LORMETAZEPAM
     Indication: Product used for unknown indication
     Dosage: UNK
     Route: 065

REACTIONS (11)
  - Anticholinergic syndrome [Recovered/Resolved]
  - Urinary retention [Recovered/Resolved]
  - Confusional state [Recovered/Resolved]
  - Mydriasis [Recovered/Resolved]
  - Pyrexia [Recovered/Resolved]
  - Hypertension [Recovered/Resolved]
  - Tachycardia [Recovered/Resolved]
  - Speech disorder [Recovered/Resolved]
  - Agitation [Recovered/Resolved]
  - Mucosal dryness [Recovered/Resolved]
  - Behaviour disorder [Recovering/Resolving]
